FAERS Safety Report 8307801-8 (Version None)
Quarter: 2012Q2

REPORT INFORMATION
  Report Type: 
  Country: None (occurrence: None)
  Receive Date: 20120424
  Receipt Date: 20120409
  Transmission Date: 20120825
  Serious: Yes (Hospitalization)
  Sender: FDA-Public Use
  Company Number: TW-WATSON-2012-06367

PATIENT
  Age: 18 Year
  Sex: Female

DRUGS (1)
  1. BUPROPION HCL [Suspect]
     Indication: INTENTIONAL OVERDOSE
     Dosage: 2.85 G, SINGLE
     Route: 065

REACTIONS (6)
  - VENTRICULAR TACHYCARDIA [None]
  - ELECTROCARDIOGRAM QT PROLONGED [None]
  - STATUS EPILEPTICUS [None]
  - METABOLIC ACIDOSIS [None]
  - MENTAL STATUS CHANGES [None]
  - OVERDOSE [None]
